FAERS Safety Report 5211994-9 (Version None)
Quarter: 2007Q1

REPORT INFORMATION
  Report Type: 
  Country: None (occurrence: None)
  Receive Date: 20070118
  Receipt Date: 20070108
  Transmission Date: 20070707
  Serious: Yes (Hospitalization)
  Sender: FDA-Public Use
  Company Number: FR-GLAXOSMITHKLINE-B0453762A

PATIENT
  Age: 35 Year
  Sex: Male

DRUGS (3)
  1. TRIZIVIR [Suspect]
     Indication: HIV INFECTION
     Route: 065
     Dates: end: 20020101
  2. COMBIVIR [Suspect]
     Indication: HIV INFECTION
     Dosage: 1UNIT TWICE PER DAY
     Route: 048
     Dates: start: 20020101, end: 20061206
  3. VIRAMUNE [Suspect]
     Indication: HIV INFECTION
     Dosage: 200MG TWICE PER DAY
     Route: 048
     Dates: start: 20020101, end: 20061206

REACTIONS (5)
  - ANAEMIA [None]
  - ASTHENIA [None]
  - DYSPNOEA [None]
  - HYPERSENSITIVITY [None]
  - PALLOR [None]
